FAERS Safety Report 5493300-8 (Version None)
Quarter: 2007Q4

REPORT INFORMATION
  Report Type: 
  Country: None (occurrence: None)
  Receive Date: 20071023
  Receipt Date: 20061003
  Transmission Date: 20080405
  Serious: No
  Sender: FDA-Public Use
  Company Number: US-BRISTOL-MYERS SQUIBB COMPANY-13530589

PATIENT
  Age: 39 Year
  Sex: Female

DRUGS (1)
  1. KENALOG-40 [Suspect]
     Indication: SINUSITIS
     Dosage: RECEIVES KENALOG-40, 1 CC INTRAMUSCULARLY INTO HER GLUTEUS MUSCLE ONE TIME IN JULY 2006
     Route: 030
     Dates: start: 20060101

REACTIONS (1)
  - MUSCLE ATROPHY [None]
